FAERS Safety Report 21467816 (Version 1)
Quarter: 2022Q4

REPORT INFORMATION
  Report Type: Spontaneous
  Country: FR (occurrence: FR)
  Receive Date: 20221017
  Receipt Date: 20221017
  Transmission Date: 20230113
  Serious: Yes (Other)
  Sender: FDA-Public Use
  Company Number: FR-NOVARTISPH-NVSC2022FR232537

PATIENT
  Sex: Male

DRUGS (7)
  1. LUTATHERA [Suspect]
     Active Substance: LUTETIUM OXODOTREOTIDE LU-177
     Indication: Neuroendocrine tumour
     Dosage: 7727 MBQ, ONCE (5TH INJECTION)
     Route: 042
     Dates: start: 20220824, end: 20220824
  2. LUTATHERA [Suspect]
     Active Substance: LUTETIUM OXODOTREOTIDE LU-177
     Dosage: 6TH INJECTION
     Route: 042
     Dates: start: 20220929
  3. NEBIVOLOL [Concomitant]
     Active Substance: NEBIVOLOL
     Indication: Product used for unknown indication
     Dosage: 5 MG
     Route: 065
  4. PANCRELIPASE [Concomitant]
     Active Substance: PANCRELIPASE
     Indication: Product used for unknown indication
     Dosage: 40000 IU, TID, (THREE TIMES A DAY (MORNING EVENING AND NOON))
     Route: 065
  5. QUESTRAN [Concomitant]
     Active Substance: CHOLESTYRAMINE
     Indication: Product used for unknown indication
     Dosage: 4 MG, TID (THREE TIMES A DAY (1 MORNING, 1 EVENING AND, 1 NOON))
     Route: 065
  6. ACTIVATED CHARCOAL\DIMETHICONE [Concomitant]
     Active Substance: ACTIVATED CHARCOAL\DIMETHICONE
     Indication: Product used for unknown indication
     Dosage: 2 DOSAGE FORM, TID, (THREE TIMES A DAY (MORNING, EVENING AND, NOON))
     Route: 065
  7. LANREOTIDE ACETATE [Concomitant]
     Active Substance: LANREOTIDE ACETATE
     Indication: Product used for unknown indication
     Dosage: 1 DOSAGE FORM, Q2W (ONE INJECTION OF 120MG)
     Route: 065

REACTIONS (6)
  - Pelvic neoplasm [Not Recovered/Not Resolved]
  - Pyelocaliectasis [Not Recovered/Not Resolved]
  - Metastases to liver [Unknown]
  - Hepatic lesion [Unknown]
  - 5-hydroxyindolacetic acid in urine [Unknown]
  - Intentional product use issue [Unknown]

NARRATIVE: CASE EVENT DATE: 20221010
